FAERS Safety Report 8928051 (Version 1)
Quarter: 2012Q4

REPORT INFORMATION
  Report Type: 
  Country: US (occurrence: None)
  Receive Date: 20121120
  Receipt Date: 20121120
  Transmission Date: 20130627
  Serious: Yes (Death)
  Sender: FDA-Public Use
  Company Number: PERC20120165

PATIENT
  Age: 20 Year
  Sex: Male

DRUGS (1)
  1. PERCOCET [Suspect]
     Indication: DRUG ABUSE
     Dosage: injection
     Dates: start: 201209

REACTIONS (12)
  - Depressed level of consciousness [None]
  - Respiratory distress [None]
  - Sputum abnormal [None]
  - Unresponsive to stimuli [None]
  - Pulseless electrical activity [None]
  - Drug level increased [None]
  - Toxicity to various agents [None]
  - Needle track marks [None]
  - Skin haemorrhage [None]
  - Pulmonary embolism [None]
  - Wrong technique in drug usage process [None]
  - Incorrect route of drug administration [None]
